FAERS Safety Report 5476691-3 (Version None)
Quarter: 2007Q4

REPORT INFORMATION
  Report Type: 
  Country: None (occurrence: None)
  Receive Date: 20071002
  Receipt Date: 20070917
  Transmission Date: 20080405
  Serious: Yes (Death, Hospitalization)
  Sender: FDA-Public Use
  Company Number: WAES 0709USA02351

PATIENT
  Age: 67 Year
  Sex: Female

DRUGS (10)
  1. DEXAMETHASONE [Suspect]
     Indication: MULTIPLE MYELOMA
  2. DOXIL [Suspect]
     Indication: MULTIPLE MYELOMA
     Dates: start: 20070122, end: 20070716
  3. THALIDOMIDE [Suspect]
  4. BACTRIM [Concomitant]
  5. COUMADIN [Concomitant]
  6. VALTREX [Concomitant]
  7. ATENOLOL [Concomitant]
  8. HYDROCHLOROTHIAZIDE [Concomitant]
  9. LOVASTATIN [Concomitant]
  10. METOPROLOL TARTRATE [Concomitant]

REACTIONS (37)
  - ACUTE RESPIRATORY DISTRESS SYNDROME [None]
  - ANAEMIA [None]
  - ASTHENIA [None]
  - ATRIAL FIBRILLATION [None]
  - BACILLUS INFECTION [None]
  - BACK PAIN [None]
  - BILIARY DILATATION [None]
  - BLOOD SODIUM DECREASED [None]
  - CHEST DISCOMFORT [None]
  - CHOLECYSTITIS ACUTE [None]
  - COAGULOPATHY [None]
  - DECREASED APPETITE [None]
  - DEEP VEIN THROMBOSIS [None]
  - FATIGUE [None]
  - GASTROINTESTINAL HAEMORRHAGE [None]
  - HYPOKALAEMIA [None]
  - INTERNATIONAL NORMALISED RATIO INCREASED [None]
  - LETHARGY [None]
  - LUNG CONSOLIDATION [None]
  - LUNG INFILTRATION [None]
  - LYMPHADENOPATHY [None]
  - PAIN IN EXTREMITY [None]
  - PANCYTOPENIA [None]
  - PATHOGEN RESISTANCE [None]
  - PNEUMONIA [None]
  - PNEUMONIA BACTERIAL [None]
  - POST PROCEDURAL COMPLICATION [None]
  - POST PROCEDURAL HAEMORRHAGE [None]
  - RESPIRATORY FAILURE [None]
  - SEPTIC SHOCK [None]
  - SPUTUM CULTURE POSITIVE [None]
  - STAPHYLOCOCCAL INFECTION [None]
  - TACHYCARDIA [None]
  - THROMBOSIS [None]
  - URINARY TRACT INFECTION [None]
  - WEIGHT INCREASED [None]
  - WOUND DRAINAGE [None]
